FAERS Safety Report 25003233 (Version 1)
Quarter: 2025Q1

REPORT INFORMATION
  Report Type: Spontaneous
  Country: US (occurrence: US)
  Receive Date: 20250224
  Receipt Date: 20250224
  Transmission Date: 20250409
  Serious: No
  Sender: CSL BEHRING
  Company Number: US-BEH-2025196199

PATIENT
  Sex: Female

DRUGS (1)
  1. PRIVIGEN [Suspect]
     Active Substance: HUMAN IMMUNOGLOBULIN G
     Indication: Chronic inflammatory demyelinating polyradiculoneuropathy
     Dosage: 40 G, QOW
     Route: 042
     Dates: start: 202501

REACTIONS (4)
  - Epistaxis [Unknown]
  - Haemoptysis [Unknown]
  - Feeling abnormal [Unknown]
  - Dizziness [Unknown]
